FAERS Safety Report 6704695-9 (Version None)
Quarter: 2010Q2

REPORT INFORMATION
  Report Type: 
  Country: None (occurrence: None)
  Receive Date: 20100430
  Receipt Date: 20100421
  Transmission Date: 20101027
  Serious: Yes (Hospitalization)
  Sender: FDA-Public Use
  Company Number: DE-AMGEN-US408084

PATIENT
  Sex: Female

DRUGS (2)
  1. ENBREL [Suspect]
     Indication: JUVENILE ARTHRITIS
     Dosage: DOSE AND FREQUENCY UNKNOWN
     Route: 058
     Dates: end: 20100401
  2. METHOTREXATE [Suspect]
     Indication: JUVENILE ARTHRITIS
     Dosage: DOSE AND FREQUENCY UNKNOWN
     Route: 065
     Dates: end: 20100401

REACTIONS (1)
  - LIPASE INCREASED [None]
